FAERS Safety Report 5103052-9 (Version None)
Quarter: 2006Q3

REPORT INFORMATION
  Report Type: 
  Country: None (occurrence: None)
  Receive Date: 20060907
  Receipt Date: 20060823
  Transmission Date: 20061208
  Serious: Yes (Other)
  Sender: FDA-Public Use
  Company Number: 14580

PATIENT
  Age: 48 Year
  Sex: Female
  Weight: 60 kg

DRUGS (6)
  1. PACLITAXEL [Suspect]
     Indication: BREAST CANCER FEMALE
     Dosage: 290 MG PER _CYCLE IV
     Route: 042
     Dates: start: 20060607, end: 20060607
  2. PACLITAXEL [Suspect]
     Indication: BREAST CANCER FEMALE
     Dosage: 290 MG PER_CYCLE IV
     Route: 042
     Dates: start: 20060630, end: 20060630
  3. PACLITAXEL [Suspect]
     Indication: BREAST CANCER FEMALE
     Dosage: 290 MG PER_CYCLE IV
     Route: 042
     Dates: start: 20060721, end: 20060721
  4. FLUTICASON [Concomitant]
  5. HERCEPTIN [Concomitant]
  6. PACLITAXEL [Suspect]

REACTIONS (8)
  - BACK PAIN [None]
  - FATIGUE [None]
  - FLUSHING [None]
  - HYPERSENSITIVITY [None]
  - INFUSION RELATED REACTION [None]
  - PHARYNGOLARYNGEAL PAIN [None]
  - PYREXIA [None]
  - RASH [None]
